FAERS Safety Report 5952511-5 (Version None)
Quarter: 2008Q4

REPORT INFORMATION
  Report Type: 
  Country: None (occurrence: None)
  Receive Date: 20081113
  Receipt Date: 20081030
  Transmission Date: 20090506
  Serious: Yes (Hospitalization)
  Sender: FDA-Public Use
  Company Number: PL-GENENTECH-229234

PATIENT
  Sex: Female
  Weight: 56 kg

DRUGS (5)
  1. BEVACIZUMAB [Suspect]
     Indication: PANCREATIC CARCINOMA METASTATIC
     Dosage: 5 MG/KG, Q2W
     Route: 042
     Dates: start: 20060324
  2. ERLOTINIB [Suspect]
     Indication: PANCREATIC CARCINOMA METASTATIC
     Dosage: 50 MG, QD
     Route: 048
     Dates: start: 20060324
  3. ERLOTINIB [Suspect]
     Dosage: 100 MG, QD
  4. GEMCITABINE HCL [Suspect]
     Indication: PANCREATIC CARCINOMA METASTATIC
     Dosage: 1700 MG, 1/WEEK
     Route: 042
     Dates: start: 20060324, end: 20060818
  5. GEMCITABINE HCL [Suspect]
     Dosage: 1600 MG, 1/WEEK
     Route: 042

REACTIONS (3)
  - ANAEMIA [None]
  - CHOLANGITIS [None]
  - STENT OCCLUSION [None]
